FAERS Safety Report 19679807 (Version 1)
Quarter: 2021Q3

REPORT INFORMATION
  Report Type: Spontaneous
  Country: US (occurrence: US)
  Receive Date: 20210810
  Receipt Date: 20210810
  Transmission Date: 20211014
  Serious: Yes (Other)
  Sender: FDA-Public Use
  Company Number: US-SHILPA MEDICARE LIMITED-SML-US-2021-00968

PATIENT
  Age: 72 Year
  Sex: Female

DRUGS (5)
  1. CARBOPLATIN. [Suspect]
     Active Substance: CARBOPLATIN
     Indication: OVARIAN CANCER
  2. DOCETAXEL, UNKNOWN [Suspect]
     Active Substance: DOCETAXEL
     Indication: OVARIAN CANCER
  3. TAXOL [Suspect]
     Active Substance: PACLITAXEL
     Dosage: WITH 14 DAYS OF PALLIATIVE RADIATION THERAPY
  4. IFOSFAMIDE. [Suspect]
     Active Substance: IFOSFAMIDE
     Indication: OVARIAN CANCER
  5. TAXOL [Suspect]
     Active Substance: PACLITAXEL
     Indication: OVARIAN CANCER

REACTIONS (17)
  - Pain [Recovering/Resolving]
  - Therapeutic response decreased [Unknown]
  - Metastases to lymph nodes [Unknown]
  - Metastases to bone [Unknown]
  - Back pain [Recovering/Resolving]
  - Polyneuropathy [Recovering/Resolving]
  - Tumour pruritus [Unknown]
  - Cachexia [Unknown]
  - Dyspnoea [Unknown]
  - Cancer pain [Recovering/Resolving]
  - Decreased appetite [Unknown]
  - Vaginal haemorrhage [Unknown]
  - Disease progression [Not Recovered/Not Resolved]
  - Nausea [Unknown]
  - Ovarian cancer recurrent [Not Recovered/Not Resolved]
  - Metastases to lung [Unknown]
  - Vulvovaginal pain [Recovering/Resolving]
